FAERS Safety Report 22593641 (Version 2)
Quarter: 2023Q2

REPORT INFORMATION
  Report Type: Spontaneous
  Country: JP (occurrence: JP)
  Receive Date: 20230613
  Receipt Date: 20230628
  Transmission Date: 20230721
  Serious: Yes (Hospitalization)
  Sender: FDA-Public Use
  Company Number: JP-GILEAD-2023-0631735

PATIENT
  Age: 8 Decade
  Sex: Male
  Weight: 44.5 kg

DRUGS (30)
  1. VEKLURY [Interacting]
     Active Substance: REMDESIVIR
     Indication: COVID-19
     Dosage: 200 MG
     Route: 065
     Dates: start: 20220827, end: 20220827
  2. VEKLURY [Interacting]
     Active Substance: REMDESIVIR
     Dosage: 100 MG
     Route: 065
     Dates: start: 20220828, end: 20220901
  3. AMPICILLIN SODIUM\SULBACTAM SODIUM [Suspect]
     Active Substance: AMPICILLIN SODIUM\SULBACTAM SODIUM
     Indication: Pneumonia bacterial
     Dosage: 1.5 G, BID
     Route: 065
     Dates: start: 20220827
  4. WARFARIN POTASSIUM [Interacting]
     Active Substance: WARFARIN POTASSIUM
     Indication: Product used for unknown indication
     Dosage: 2 MG
     Route: 048
     Dates: end: 202208
  5. WARFARIN POTASSIUM [Interacting]
     Active Substance: WARFARIN POTASSIUM
     Dosage: 1 MG
     Route: 048
     Dates: start: 20220904
  6. SOTROVIMAB [Concomitant]
     Active Substance: SOTROVIMAB
     Indication: COVID-19
     Dosage: 500 MG
     Dates: start: 20220827
  7. CARBIDOPA\LEVODOPA [Concomitant]
     Active Substance: CARBIDOPA\LEVODOPA
     Indication: Neuroleptic malignant syndrome
     Dosage: 600 MG
     Route: 048
     Dates: end: 202208
  8. CARBIDOPA\LEVODOPA [Concomitant]
     Active Substance: CARBIDOPA\LEVODOPA
     Dosage: 600 MG
     Route: 048
     Dates: start: 20220828
  9. DROXIDOPA [Concomitant]
     Active Substance: DROXIDOPA
     Indication: Neuroleptic malignant syndrome
     Dosage: 100 MG
     Route: 048
     Dates: end: 202208
  10. DROXIDOPA [Concomitant]
     Active Substance: DROXIDOPA
     Dosage: 100 MG
     Route: 048
     Dates: start: 20220828
  11. PERGOLIDE MESILATE [Concomitant]
     Dosage: 150 UG
     Route: 048
     Dates: end: 202208
  12. PERGOLIDE MESILATE [Concomitant]
     Dosage: 150 UG
     Route: 048
     Dates: start: 20220830
  13. ISTRADEFYLLINE [Concomitant]
     Active Substance: ISTRADEFYLLINE
     Dosage: 20 MG
     Route: 048
     Dates: end: 202208
  14. ISTRADEFYLLINE [Concomitant]
     Active Substance: ISTRADEFYLLINE
     Dosage: 20 MG
     Route: 048
     Dates: start: 20220830
  15. CLONAZEPAM [Concomitant]
     Active Substance: CLONAZEPAM
     Dosage: 0.5 MG
     Route: 048
     Dates: end: 202208
  16. CLONAZEPAM [Concomitant]
     Active Substance: CLONAZEPAM
     Dosage: 0.5 MG
     Route: 048
     Dates: start: 20220830
  17. QUETIAPINE FUMARATE [Concomitant]
     Active Substance: QUETIAPINE FUMARATE
     Dosage: 25 MG
     Route: 048
     Dates: end: 202208
  18. QUETIAPINE FUMARATE [Concomitant]
     Active Substance: QUETIAPINE FUMARATE
     Dosage: 25 MG
     Route: 048
     Dates: start: 20220830
  19. AMANTADINE HYDROCHLORIDE [Concomitant]
     Active Substance: AMANTADINE HYDROCHLORIDE
     Indication: Neuroleptic malignant syndrome
     Dosage: 100 MG
     Route: 048
     Dates: end: 202208
  20. AMANTADINE HYDROCHLORIDE [Concomitant]
     Active Substance: AMANTADINE HYDROCHLORIDE
     Dosage: 100 MG
     Route: 048
     Dates: start: 20220828
  21. AMBROXOL [Concomitant]
     Active Substance: AMBROXOL
     Indication: Neuroleptic malignant syndrome
     Dosage: 45 MG
     Route: 048
     Dates: end: 202208
  22. AMBROXOL [Concomitant]
     Active Substance: AMBROXOL
     Dosage: 45 MG
     Route: 048
     Dates: start: 20220828
  23. CARBOCYSTEINE [Concomitant]
     Active Substance: CARBOCYSTEINE
     Dosage: 1500 MG
     Route: 048
     Dates: end: 202208
  24. CARBOCYSTEINE [Concomitant]
     Active Substance: CARBOCYSTEINE
     Dosage: 1500 MG
     Route: 048
     Dates: start: 20220830
  25. ELDECALCITOL [Concomitant]
     Active Substance: ELDECALCITOL
     Dosage: 0.75 UG
     Route: 048
     Dates: end: 202208
  26. ELDECALCITOL [Concomitant]
     Active Substance: ELDECALCITOL
     Dosage: 0.75 UG
     Route: 048
     Dates: start: 20220830
  27. MAGNESIUM OXIDE [Concomitant]
     Active Substance: MAGNESIUM OXIDE
     Dosage: 2000 MG
     Route: 048
     Dates: end: 202208
  28. MAGNESIUM OXIDE [Concomitant]
     Active Substance: MAGNESIUM OXIDE
     Dosage: 2000 MG
     Route: 048
     Dates: start: 20220830
  29. VITAMIN B COMPLEX [CYANOCOBALAMIN;PYRIDOXINE HYDROCHLORIDE;THIAMINE HY [Concomitant]
     Dosage: 10 ML
     Dates: start: 20220829
  30. AMINO ACIDS NOS;CARBOHYDRATES NOS;ELECTROLYTES NOS;VITAMINS NOS [Concomitant]
     Dosage: 500 ML
     Dates: start: 20220829

REACTIONS (2)
  - International normalised ratio increased [Recovering/Resolving]
  - Drug interaction [Unknown]

NARRATIVE: CASE EVENT DATE: 20220829
